FAERS Safety Report 7775749-3 (Version None)
Quarter: 2011Q3

REPORT INFORMATION
  Report Type: 
  Country: None (occurrence: None)
  Receive Date: 20110923
  Receipt Date: 20110916
  Transmission Date: 20111222
  Serious: Yes (Hospitalization, Other)
  Sender: FDA-Public Use
  Company Number: US-ABBOTT-11P-163-0844703-00

PATIENT
  Sex: Male
  Weight: 101.7 kg

DRUGS (25)
  1. FLOMAX [Concomitant]
     Indication: PRODUCT USED FOR UNKNOWN INDICATION
     Route: 048
  2. ALLOPURINOL [Concomitant]
     Indication: PRODUCT USED FOR UNKNOWN INDICATION
     Route: 048
  3. BUMEX [Concomitant]
     Indication: PRODUCT USED FOR UNKNOWN INDICATION
     Dosage: DAILY DOSE: 1MG
  4. ASPIRIN [Concomitant]
     Indication: PRODUCT USED FOR UNKNOWN INDICATION
     Route: 048
  5. ZETIA [Concomitant]
     Indication: PRODUCT USED FOR UNKNOWN INDICATION
     Route: 048
  6. DISOPYRAMIDE [Concomitant]
     Indication: PRODUCT USED FOR UNKNOWN INDICATION
     Dosage: 2 TABLETS DAILY
     Route: 048
  7. BALSALAZIDE DISODIUM [Concomitant]
     Indication: PRODUCT USED FOR UNKNOWN INDICATION
     Dosage: 3 TABS THREE TIMES A DAY
  8. AMARYL [Concomitant]
     Indication: PRODUCT USED FOR UNKNOWN INDICATION
     Route: 048
  9. PERCOCET [Concomitant]
     Indication: PAIN
     Dosage: 5/325 MG 1 TAB EVERY 6 HOURS AS NEEDED
  10. CARAFATE [Concomitant]
     Indication: PRODUCT USED FOR UNKNOWN INDICATION
     Dosage: 1 GM FOUR TIME A DAY AS NEEDED
  11. NOVOLIN 70/30 [Concomitant]
     Indication: PRODUCT USED FOR UNKNOWN INDICATION
     Dosage: TAKE AS DIRECTED IF HE TAKES PREDNISONE
     Route: 058
  12. SIMVASTATIN [Concomitant]
     Indication: PRODUCT USED FOR UNKNOWN INDICATION
  13. OMEPRAZOLE [Concomitant]
     Indication: PRODUCT USED FOR UNKNOWN INDICATION
     Route: 048
  14. BUMETANIDE [Concomitant]
     Indication: PRODUCT USED FOR UNKNOWN INDICATION
     Route: 048
  15. TRAMADOL HCL [Concomitant]
     Indication: PRODUCT USED FOR UNKNOWN INDICATION
     Dosage: AT BEDTIME
     Route: 048
  16. GLUCOPHAGE [Concomitant]
     Indication: PRODUCT USED FOR UNKNOWN INDICATION
     Route: 048
  17. CARAFATE [Concomitant]
     Dosage: AS DIRECTED EVERY 6 HOURS AS NEEDED
  18. PLAVIX [Concomitant]
     Indication: PRODUCT USED FOR UNKNOWN INDICATION
     Route: 048
  19. CHLOR-KON [Concomitant]
     Indication: PRODUCT USED FOR UNKNOWN INDICATION
     Route: 048
  20. ZOCOR [Concomitant]
     Indication: PRODUCT USED FOR UNKNOWN INDICATION
     Route: 048
  21. HUMIRA [Suspect]
     Indication: CROHN'S DISEASE
     Dates: start: 20071201
  22. DELSYM [Concomitant]
     Indication: PRODUCT USED FOR UNKNOWN INDICATION
     Dosage: AT BEDTIME
  23. TOPROL-XL [Concomitant]
     Indication: PRODUCT USED FOR UNKNOWN INDICATION
     Route: 048
  24. DILTIAZEM CD [Concomitant]
     Indication: PRODUCT USED FOR UNKNOWN INDICATION
     Route: 048
  25. XANAX [Concomitant]
     Indication: PRODUCT USED FOR UNKNOWN INDICATION

REACTIONS (23)
  - ATRIAL FIBRILLATION [None]
  - ERECTILE DYSFUNCTION [None]
  - HAEMATURIA [None]
  - CROHN'S DISEASE [None]
  - INJECTION SITE PAIN [None]
  - MYOCARDIAL INFARCTION [None]
  - TOOTH ABSCESS [None]
  - MITRAL VALVE INCOMPETENCE [None]
  - AORTIC ANEURYSM [None]
  - INJECTION SITE ERYTHEMA [None]
  - MOUTH ULCERATION [None]
  - NEPHROLITHIASIS [None]
  - HYPERTENSIVE HEART DISEASE [None]
  - RENAL DISORDER [None]
  - MICROALBUMINURIA [None]
  - RENAL CYST [None]
  - PALPITATIONS [None]
  - AORTIC DILATATION [None]
  - INJECTION SITE REACTION [None]
  - AORTIC VALVE INCOMPETENCE [None]
  - RENAL FAILURE [None]
  - CHEST PAIN [None]
  - ERYTHEMA NODOSUM [None]
